FAERS Safety Report 20319846 (Version 1)
Quarter: 2022Q1

REPORT INFORMATION
  Report Type: Spontaneous
  Country: IT (occurrence: IT)
  Receive Date: 20220111
  Receipt Date: 20220111
  Transmission Date: 20220423
  Serious: Yes (Hospitalization)
  Sender: FDA-Public Use
  Company Number: IT-MINISAL02-821298

PATIENT
  Age: 82 Year
  Sex: Female

DRUGS (1)
  1. GEMCITABINE [Suspect]
     Active Substance: GEMCITABINE
     Indication: Pancreatic neoplasm
     Dosage: UNK
     Route: 065
     Dates: start: 20210927, end: 20210927

REACTIONS (3)
  - Asthenia [Unknown]
  - Vomiting [Unknown]
  - Anaemia [Unknown]

NARRATIVE: CASE EVENT DATE: 20211005
